FAERS Safety Report 12159579 (Version 1)
Quarter: 2016Q1

REPORT INFORMATION
  Report Type: Spontaneous
  Country: MX (occurrence: MX)
  Receive Date: 20160308
  Receipt Date: 20160308
  Transmission Date: 20160526
  Serious: Yes (Life-Threatening, Hospitalization, Other)
  Sender: FDA-Public Use
  Company Number: MX-GLAXOSMITHKLINE-MX2016GSK033213

PATIENT
  Age: 62 Year
  Sex: Male
  Weight: 68 kg

DRUGS (1)
  1. RAPIVIR [Suspect]
     Active Substance: VALACYCLOVIR HYDROCHLORIDE
     Indication: HERPES VIRUS INFECTION
     Dosage: 2 DF, BID, 500 MG TABLET
     Route: 048
     Dates: start: 20160208, end: 20160214

REACTIONS (7)
  - Platelet count decreased [Not Recovered/Not Resolved]
  - Haemoglobin decreased [Not Recovered/Not Resolved]
  - Accident [Unknown]
  - Blood urine present [Recovered/Resolved]
  - Cerebral haemorrhage [Unknown]
  - Head injury [Not Recovered/Not Resolved]
  - Syncope [Unknown]

NARRATIVE: CASE EVENT DATE: 20160210
